FAERS Safety Report 9893164 (Version 2)
Quarter: 2016Q2

REPORT INFORMATION
  Report Type: Report from Study
  Country: US (occurrence: US)
  Receive Date: 20140213
  Receipt Date: 20160622
  Transmission Date: 20160815
  Serious: Yes (Other)
  Sender: FDA-Public Use
  Company Number: US-ROCHE-1322904

PATIENT
  Age: 54 Year
  Sex: Male
  Weight: 97.7 kg

DRUGS (38)
  1. FLUOROURACIL. [Concomitant]
     Active Substance: FLUOROURACIL
     Route: 040
     Dates: start: 20120425
  2. AVASTIN [Suspect]
     Active Substance: BEVACIZUMAB
     Indication: LYMPHOMA
     Route: 040
     Dates: start: 20120409
  3. AVASTIN [Suspect]
     Active Substance: BEVACIZUMAB
     Indication: METASTASES TO THE MEDIASTINUM
     Route: 042
     Dates: start: 20120425
  4. AVASTIN [Suspect]
     Active Substance: BEVACIZUMAB
     Route: 042
     Dates: start: 20121022
  5. AVASTIN [Suspect]
     Active Substance: BEVACIZUMAB
     Route: 042
     Dates: start: 20120702
  6. AVASTIN [Suspect]
     Active Substance: BEVACIZUMAB
     Route: 042
     Dates: start: 20130506
  7. AVASTIN [Suspect]
     Active Substance: BEVACIZUMAB
     Indication: COLON CANCER
     Route: 040
     Dates: start: 20111025
  8. AVASTIN [Suspect]
     Active Substance: BEVACIZUMAB
     Route: 042
     Dates: start: 20130813
  9. AVASTIN [Suspect]
     Active Substance: BEVACIZUMAB
     Route: 042
     Dates: start: 20120521
  10. FLUOROURACIL. [Concomitant]
     Active Substance: FLUOROURACIL
     Dosage: CIV PUMP
     Route: 041
     Dates: start: 20111107
  11. AVASTIN [Suspect]
     Active Substance: BEVACIZUMAB
     Route: 042
     Dates: start: 20130318
  12. AVASTIN [Suspect]
     Active Substance: BEVACIZUMAB
     Route: 042
     Dates: start: 20120924
  13. AVASTIN [Suspect]
     Active Substance: BEVACIZUMAB
     Route: 042
     Dates: start: 20130520
  14. AVASTIN [Suspect]
     Active Substance: BEVACIZUMAB
     Route: 042
  15. FLUOROURACIL. [Concomitant]
     Active Substance: FLUOROURACIL
     Route: 040
     Dates: start: 20130118
  16. PALONOSETRON HYDROCHLORIDE. [Concomitant]
     Active Substance: PALONOSETRON HYDROCHLORIDE
     Route: 042
  17. DEXAMETHASONE SODIUM PHOSPHATE. [Concomitant]
     Active Substance: DEXAMETHASONE SODIUM PHOSPHATE
     Route: 042
  18. SODIUM CHLORIDE. [Concomitant]
     Active Substance: SODIUM CHLORIDE
  19. AVASTIN [Suspect]
     Active Substance: BEVACIZUMAB
     Route: 042
     Dates: start: 20120730
  20. AVASTIN [Suspect]
     Active Substance: BEVACIZUMAB
     Route: 042
  21. FLUOROURACIL. [Concomitant]
     Active Substance: FLUOROURACIL
     Route: 040
     Dates: start: 20130422
  22. FLUOROURACIL. [Concomitant]
     Active Substance: FLUOROURACIL
     Dosage: CIV PUMP
     Route: 041
     Dates: start: 20130108
  23. FLUOROURACIL. [Concomitant]
     Active Substance: FLUOROURACIL
     Dosage: CIV PUMP
     Route: 041
     Dates: start: 20130422
  24. LEUCOVORIN. [Concomitant]
     Active Substance: LEUCOVORIN
     Route: 040
  25. LEUCOVORIN. [Concomitant]
     Active Substance: LEUCOVORIN
     Route: 042
  26. AVASTIN [Suspect]
     Active Substance: BEVACIZUMAB
     Route: 042
  27. AVASTIN [Suspect]
     Active Substance: BEVACIZUMAB
     Route: 042
  28. FLUOROURACIL. [Concomitant]
     Active Substance: FLUOROURACIL
     Dosage: CIV PUMP
     Route: 041
     Dates: start: 20120507
  29. FLUOROURACIL. [Concomitant]
     Active Substance: FLUOROURACIL
     Route: 042
  30. AVASTIN [Suspect]
     Active Substance: BEVACIZUMAB
     Route: 042
     Dates: start: 20130422
  31. AVASTIN [Suspect]
     Active Substance: BEVACIZUMAB
     Route: 042
     Dates: start: 20130218
  32. AVASTIN [Suspect]
     Active Substance: BEVACIZUMAB
     Route: 042
     Dates: start: 20120618
  33. ELOXATIN [Concomitant]
     Active Substance: OXALIPLATIN
     Route: 042
  34. FLUOROURACIL. [Concomitant]
     Active Substance: FLUOROURACIL
     Route: 040
     Dates: start: 20111025
  35. AVASTIN [Suspect]
     Active Substance: BEVACIZUMAB
     Route: 042
     Dates: start: 20130304
  36. AVASTIN [Suspect]
     Active Substance: BEVACIZUMAB
     Route: 065
  37. DEXAMETHASONE. [Concomitant]
     Active Substance: DEXAMETHASONE
     Route: 042
  38. DEXAMETHASONE SODIUM PHOSPHATE. [Concomitant]
     Active Substance: DEXAMETHASONE SODIUM PHOSPHATE
     Route: 042

REACTIONS (13)
  - Dehydration [Unknown]
  - Bone pain [Unknown]
  - Hypocalcaemia [Unknown]
  - Laboratory test abnormal [Not Recovered/Not Resolved]
  - Haematocrit decreased [Unknown]
  - Ascites [Unknown]
  - Testicular failure [Not Recovered/Not Resolved]
  - Metastases to lymph nodes [Not Recovered/Not Resolved]
  - Deficiency anaemia [Unknown]
  - Dysuria [Unknown]
  - Dermatitis [Unknown]
  - Haemoglobin decreased [Unknown]
  - Metastases to the mediastinum [Not Recovered/Not Resolved]

NARRATIVE: CASE EVENT DATE: 20130520
